FAERS Safety Report 10596637 (Version 1)
Quarter: 2014Q4

REPORT INFORMATION
  Report Type: Spontaneous
  Country: US (occurrence: US)
  Receive Date: 20141120
  Receipt Date: 20141120
  Transmission Date: 20150529
  Serious: Yes (Other)
  Sender: FDA-Public Use
  Company Number: US-BAYER-2014-166354

PATIENT
  Age: 80 Year
  Sex: Male
  Weight: 131.5 kg

DRUGS (9)
  1. VITAMIN C [Concomitant]
     Active Substance: ASCORBIC ACID
  2. COENZYME Q10 [Concomitant]
     Active Substance: UBIDECARENONE
  3. PLAVIX [Concomitant]
     Active Substance: CLOPIDOGREL BISULFATE
  4. LISINOPRIL. [Concomitant]
     Active Substance: LISINOPRIL
  5. METOPROLOL [Concomitant]
     Active Substance: METOPROLOL
  6. BAYER GENUINE ASPIRIN [Suspect]
     Active Substance: ASPIRIN
     Indication: BACK PAIN
     Dosage: 2-3 DF, UNK
     Route: 048
  7. ALEVE [Suspect]
     Active Substance: NAPROXEN SODIUM
     Indication: BACK PAIN
     Dosage: 3 DF, ONCE
     Route: 048
     Dates: start: 2013
  8. ALEVE [Suspect]
     Active Substance: NAPROXEN SODIUM
     Indication: BACK PAIN
     Dosage: 3 DF, PRN
     Route: 048
     Dates: start: 2013
  9. NIACIN. [Concomitant]
     Active Substance: NIACIN

REACTIONS (5)
  - Extra dose administered [None]
  - Myocardial infarction [None]
  - Intentional product misuse [None]
  - Drug ineffective [None]
  - Extra dose administered [None]

NARRATIVE: CASE EVENT DATE: 2013
